FAERS Safety Report 20805810 (Version 1)
Quarter: 2022Q2

REPORT INFORMATION
  Report Type: Report from Study
  Country: US (occurrence: US)
  Receive Date: 20220510
  Receipt Date: 20220510
  Transmission Date: 20220721
  Serious: Yes (Death, Other)
  Sender: FDA-Public Use
  Company Number: US-BRISTOL-MYERS SQUIBB COMPANY-2022-018634

PATIENT
  Age: 92 Year
  Sex: Male

DRUGS (16)
  1. REVLIMID [Suspect]
     Active Substance: LENALIDOMIDE
     Indication: Refractory anaemia with an excess of blasts
     Dosage: 10MG/1 CAP 21 OUT OF 28 DAYS ORALLY
     Route: 048
     Dates: start: 20220331
  2. REVLIMID [Suspect]
     Active Substance: LENALIDOMIDE
     Indication: Plasma cell myeloma
  3. DEXAMETHASONE [Concomitant]
     Active Substance: DEXAMETHASONE
  4. OMEPRAZOLE [Concomitant]
     Active Substance: OMEPRAZOLE
  5. PLAVIX [Concomitant]
     Active Substance: CLOPIDOGREL BISULFATE
  6. ALLOPURINOL [Concomitant]
     Active Substance: ALLOPURINOL
  7. OXYCODONE [Concomitant]
     Active Substance: OXYCODONE
  8. OXYCODONE [Concomitant]
     Active Substance: OXYCODONE
  9. ACETAMINOPHEN [Concomitant]
     Active Substance: ACETAMINOPHEN
  10. ONDANSETRON [Concomitant]
     Active Substance: ONDANSETRON
  11. MIRALAX [Concomitant]
     Active Substance: POLYETHYLENE GLYCOL 3350
  12. VITAMIN B12 [Concomitant]
     Active Substance: CYANOCOBALAMIN
  13. VITAMIN D2 [Concomitant]
     Active Substance: ERGOCALCIFEROL
  14. XGEVA [Concomitant]
     Active Substance: DENOSUMAB
  15. LIDOCAINE [Concomitant]
     Active Substance: LIDOCAINE
  16. DULCOLAX BALANCE [Concomitant]
     Active Substance: POLYETHYLENE GLYCOL 3350

REACTIONS (2)
  - Death [Fatal]
  - Adverse event [Unknown]
